FAERS Safety Report 23525407 (Version 1)
Quarter: 2024Q1

REPORT INFORMATION
  Report Type: Spontaneous
  Country: US (occurrence: US)
  Receive Date: 20240215
  Receipt Date: 20240215
  Transmission Date: 20240410
  Serious: No
  Sender: FDA-Public Use
  Company Number: US-HIKMA PHARMACEUTICALS USA INC.-US-H14001-23-02091

PATIENT
  Sex: Male

DRUGS (1)
  1. FLUTICASONE PROPIONATE [Suspect]
     Active Substance: FLUTICASONE PROPIONATE
     Indication: Hypersensitivity
     Dosage: 2 SPRAYS IN EACH NOSTRIL, QD
     Route: 045

REACTIONS (4)
  - Fatigue [Unknown]
  - Pharyngitis [Not Recovered/Not Resolved]
  - Throat irritation [Not Recovered/Not Resolved]
  - Off label use [Unknown]
